FAERS Safety Report 6717239-2 (Version None)
Quarter: 2010Q2

REPORT INFORMATION
  Report Type: 
  Country: None (occurrence: None)
  Receive Date: 20100510
  Receipt Date: 20100505
  Transmission Date: 20101027
  Serious: Yes (Other)
  Sender: FDA-Public Use
  Company Number: PHHY2009BR33335

PATIENT
  Sex: Male

DRUGS (2)
  1. EXELON [Suspect]
     Indication: NEURODEGENERATIVE DISORDER
     Dosage: 9 MG/ 5 CM2
     Route: 062
  2. EXELON [Suspect]
     Dosage: 27MG/15 CM2
     Route: 062

REACTIONS (4)
  - AGGRESSION [None]
  - OESOPHAGEAL CANDIDIASIS [None]
  - PNEUMONIA [None]
  - TREATMENT NONCOMPLIANCE [None]
